FAERS Safety Report 18969736 (Version 1)
Quarter: 2021Q1

REPORT INFORMATION
  Report Type: Spontaneous
  Country: US (occurrence: US)
  Receive Date: 20210304
  Receipt Date: 20210304
  Transmission Date: 20210420
  Serious: Yes (Hospitalization)
  Sender: FDA-Public Use
  Company Number: US-TAKEDA-2021TUS012269

PATIENT
  Age: 64 Year
  Sex: Male
  Weight: 117.91 kg

DRUGS (8)
  1. ATORVASTATIN [Concomitant]
     Active Substance: ATORVASTATIN
  2. MYCOPHENOLATE [Concomitant]
     Active Substance: MYCOPHENOLIC ACID
  3. ASPIRIN EC [Concomitant]
     Active Substance: ASPIRIN
  4. PREDNISONE. [Concomitant]
     Active Substance: PREDNISONE
  5. DOXEPIN [Concomitant]
     Active Substance: DOXEPIN
  6. GAMMAGARD LIQUID [Suspect]
     Active Substance: HUMAN IMMUNOGLOBULIN G
     Indication: MYASTHENIA GRAVIS
     Dosage: 60 GRAM
     Route: 042
     Dates: start: 20200316
  7. MULTIVITAMIN (16) [Concomitant]
     Active Substance: VITAMINS
  8. PYRIDOSTIGMINE [Concomitant]
     Active Substance: PYRIDOSTIGMINE

REACTIONS (3)
  - Dysphagia [Unknown]
  - Product use in unapproved indication [Unknown]
  - Drug hypersensitivity [Recovered/Resolved]

NARRATIVE: CASE EVENT DATE: 20210108
